FAERS Safety Report 24718884 (Version 1)
Quarter: 2024Q4

REPORT INFORMATION
  Report Type: Spontaneous
  Country: US (occurrence: None)
  Receive Date: 20241210
  Receipt Date: 20241210
  Transmission Date: 20250115
  Serious: Yes (Hospitalization)
  Sender: Public
  Company Number: None

PATIENT
  Age: 31 Year
  Sex: Male
  Weight: 73.8 kg

DRUGS (1)
  1. QELBREE [Suspect]
     Active Substance: VILOXAZINE HYDROCHLORIDE
     Indication: Attention deficit hyperactivity disorder
     Dates: start: 20241105, end: 20241201

REACTIONS (4)
  - Suicidal ideation [None]
  - Insomnia [None]
  - Hallucination, auditory [None]
  - Decreased appetite [None]

NARRATIVE: CASE EVENT DATE: 20241202
